FAERS Safety Report 6522641-8 (Version None)
Quarter: 2009Q4

REPORT INFORMATION
  Report Type: 
  Country: None (occurrence: None)
  Receive Date: 20091230
  Receipt Date: 20091214
  Transmission Date: 20100525
  Serious: Yes (Disabling)
  Sender: FDA-Public Use
  Company Number: GB-SANOFI-AVENTIS-2009SA006971

PATIENT
  Age: 67 Year
  Sex: Male
  Weight: 90 kg

DRUGS (9)
  1. PLAVIX [Suspect]
     Indication: CORONARY ARTERY STENOSIS
     Route: 048
     Dates: start: 20091030
  2. PLAVIX [Suspect]
     Indication: CORONARY ARTERIAL STENT INSERTION
     Route: 048
     Dates: start: 20091030
  3. TEGRETOL [Concomitant]
     Indication: TEMPORAL LOBE EPILEPSY
     Route: 048
  4. ACTONEL [Concomitant]
     Indication: THORACIC VERTEBRAL FRACTURE
     Route: 048
  5. ADCAL [Concomitant]
     Indication: THORACIC VERTEBRAL FRACTURE
  6. ASPIRIN [Concomitant]
     Indication: CORONARY ARTERY STENOSIS
     Route: 065
     Dates: start: 20090101
  7. LIPITOR [Concomitant]
  8. EZETROL [Concomitant]
  9. BISOPROLOL [Concomitant]
     Indication: DRUG USE FOR UNKNOWN INDICATION

REACTIONS (4)
  - ARTHRALGIA [None]
  - ASTHENIA [None]
  - BACK PAIN [None]
  - BONE PAIN [None]
